FAERS Safety Report 13994352 (Version 1)
Quarter: 2017Q3

REPORT INFORMATION
  Report Type: Other
  Country: GB (occurrence: US)
  Receive Date: 20170920
  Receipt Date: 20170920
  Transmission Date: 20171128
  Serious: Yes (Death, Other)
  Sender: FDA-Public Use
  Company Number: US-INTERNATIONAL MEDICATION SYSTEMS, LIMITED-2027024

PATIENT
  Age: 42 Year
  Sex: Female

DRUGS (4)
  1. CARFENTANIL [Suspect]
     Active Substance: CARFENTANIL
  2. ALPRAZOLAM. [Suspect]
     Active Substance: ALPRAZOLAM
  3. METHAMPHETAMINE HYDROCHLORIDE. [Suspect]
     Active Substance: METHAMPHETAMINE HYDROCHLORIDE
  4. MORPHINE [Suspect]
     Active Substance: MORPHINE

REACTIONS (2)
  - Toxicity to various agents [Fatal]
  - Death [Fatal]
